FAERS Safety Report 8143984-0 (Version None)
Quarter: 2012Q1

REPORT INFORMATION
  Report Type: 
  Country: None (occurrence: None)
  Receive Date: 20120217
  Receipt Date: 20120217
  Transmission Date: 20120608
  Serious: Yes (Life-Threatening)
  Sender: FDA-Public Use
  Company Number: None

PATIENT
  Age: 19 Year
  Sex: Male
  Weight: 70.76 kg

DRUGS (2)
  1. CLOZAPINE [Suspect]
     Indication: SCHIZOPHRENIA
     Dosage: 75MG
     Route: 002
     Dates: start: 20120210, end: 20120215
  2. INVEGA [Concomitant]
     Dosage: 6MG
     Route: 002
     Dates: start: 20120103, end: 20120215

REACTIONS (5)
  - HEADACHE [None]
  - TACHYCARDIA [None]
  - HYPERTENSION [None]
  - PANIC ATTACK [None]
  - ANGINA PECTORIS [None]
